FAERS Safety Report 7904234-0 (Version None)
Quarter: 2011Q4

REPORT INFORMATION
  Report Type: 
  Country: None (occurrence: None)
  Receive Date: 20111109
  Receipt Date: 20111031
  Transmission Date: 20120403
  Serious: Yes (Other)
  Sender: FDA-Public Use
  Company Number: JP-ASTRAZENECA-2011SE66151

PATIENT
  Age: 28 Year
  Sex: Female
  Weight: 62 kg

DRUGS (10)
  1. LEVOFLOXACIN [Concomitant]
     Indication: BRONCHITIS
     Dosage: NUMBER OF SEPARATE DOSAGES UNKNOWN
     Route: 048
     Dates: start: 20100907, end: 20100910
  2. ACETAMINOPHEN [Concomitant]
     Indication: BRONCHITIS
     Dosage: NUMBER OF SEPARATE DOSAGES UNKNOWN
     Route: 048
     Dates: start: 20100907, end: 20100910
  3. COUGHNOL [Concomitant]
     Indication: BRONCHITIS
     Dosage: NUMBER OF SEPARATE DOSAGES UNKNOWN
     Route: 048
     Dates: start: 20100907, end: 20100910
  4. SYMBICORT [Suspect]
     Indication: ASTHMA
     Dosage: 1 DF TWO TIMES DAILY
     Route: 055
     Dates: start: 20100625, end: 20100701
  5. BAKUMONDO-TO [Concomitant]
     Indication: BRONCHITIS
     Dosage: NUMBER OF SEPARATE DOSAGES UNKNOWN
     Route: 048
     Dates: start: 20100902, end: 20100906
  6. HUSCODE [Concomitant]
     Indication: BRONCHITIS
     Dosage: NUMBER OF SEPARATE DOSAGES UNKNOWN
     Route: 048
     Dates: start: 20100907, end: 20100910
  7. RIKAVARIN [Concomitant]
     Indication: BRONCHITIS
     Dosage: NUMBER OF SEPARATE DOSAGES UNKNOWN
     Route: 048
     Dates: start: 20100902, end: 20100906
  8. SINGULAIR [Concomitant]
     Indication: ASTHMA
     Route: 048
     Dates: start: 20100611, end: 20100916
  9. ALPRAZOLAM [Concomitant]
     Indication: HYPERVENTILATION
     Dosage: NUMBER OF SEPARATE DOSAGES UNKNOWN
     Route: 048
     Dates: start: 20100715, end: 20100916
  10. SYMBICORT [Suspect]
     Dosage: 1 DF TWO TIMES DAILY
     Route: 055
     Dates: start: 20100722, end: 20100907

REACTIONS (2)
  - MATERNAL EXPOSURE DURING PREGNANCY [None]
  - ABORTION SPONTANEOUS [None]
